FAERS Safety Report 12645765 (Version 1)
Quarter: 2016Q3

REPORT INFORMATION
  Report Type: Spontaneous
  Country: US (occurrence: US)
  Receive Date: 20160811
  Receipt Date: 20160811
  Transmission Date: 20161109
  Serious: No
  Sender: FDA-Public Use
  Company Number: US-ENDO PHARMACEUTICALS INC.-2016-001730

PATIENT
  Age: 80 Year
  Sex: Female
  Weight: 57.2 kg

DRUGS (1)
  1. PREDNISONE TABLETS [Suspect]
     Active Substance: PREDNISONE
     Indication: HERPES ZOSTER
     Dosage: DOSE PACK, TAPER
     Route: 065
     Dates: start: 20160211

REACTIONS (2)
  - Wrong technique in product usage process [Not Recovered/Not Resolved]
  - Laceration [Recovered/Resolved]

NARRATIVE: CASE EVENT DATE: 201602
